FAERS Safety Report 8065722-2 (Version None)
Quarter: 2011Q4

REPORT INFORMATION
  Report Type: 
  Country: None (occurrence: None)
  Receive Date: 20111221
  Receipt Date: 20111006
  Transmission Date: 20120403
  Serious: Yes (Other)
  Sender: FDA-Public Use
  Company Number: PHEH2011US06412

PATIENT
  Age: 74 Year
  Sex: Male

DRUGS (1)
  1. EXJADE [Suspect]
     Dosage: 1750 MG, QD, ORAL
     Route: 048

REACTIONS (1)
  - GASTROINTESTINAL HAEMORRHAGE [None]
